FAERS Safety Report 10562738 (Version 1)
Quarter: 2014Q4

REPORT INFORMATION
  Report Type: Spontaneous
  Country: US (occurrence: None)
  Receive Date: 20141103
  Receipt Date: 20141103
  Transmission Date: 20150529
  Serious: Yes (Other)
  Sender: FDA-Public Use
  Company Number: None

PATIENT
  Age: 46 Year
  Sex: Female
  Weight: 57.61 kg

DRUGS (2)
  1. VENLAFAXINE [Suspect]
     Active Substance: VENLAFAXINE HYDROCHLORIDE
     Indication: SLEEP DISORDER
     Dosage: 1 FOR 10 DAYS?2 10 DAYS, 4 10
     Route: 048
     Dates: start: 20141001, end: 20141031
  2. VENLAFAXINE [Suspect]
     Active Substance: VENLAFAXINE HYDROCHLORIDE
     Indication: WEIGHT INCREASED
     Dosage: 1 FOR 10 DAYS?2 10 DAYS, 4 10
     Route: 048
     Dates: start: 20141001, end: 20141031

REACTIONS (4)
  - Aggression [None]
  - Serotonin syndrome [None]
  - Muscle disorder [None]
  - Toxicity to various agents [None]

NARRATIVE: CASE EVENT DATE: 20141024
